FAERS Safety Report 24183106 (Version 1)
Quarter: 2024Q3

REPORT INFORMATION
  Report Type: Spontaneous
  Country: US (occurrence: US)
  Receive Date: 20240807
  Receipt Date: 20240807
  Transmission Date: 20241016
  Serious: No
  Sender: BRISTOL MYERS SQUIBB
  Company Number: US-BRISTOL-MYERS SQUIBB COMPANY-2024-123824

PATIENT
  Age: 71 Year
  Sex: Female
  Weight: 72.57 kg

DRUGS (4)
  1. ELIQUIS [Suspect]
     Active Substance: APIXABAN
     Indication: Essential thrombocythaemia
     Dates: start: 20240404
  2. HYDREA [Suspect]
     Active Substance: HYDROXYUREA
     Indication: Essential thrombocythaemia
     Dates: start: 202309, end: 2024
  3. HYDREA [Suspect]
     Active Substance: HYDROXYUREA
     Indication: Platelet count increased
  4. ANAGRELIDE [Suspect]
     Active Substance: ANAGRELIDE
     Indication: Product used for unknown indication

REACTIONS (6)
  - Off label use [Unknown]
  - Dry skin [Unknown]
  - Oral pain [Unknown]
  - Corneal oedema [Unknown]
  - Headache [Unknown]
  - Palpitations [Unknown]
